FAERS Safety Report 9377229 (Version 1)
Quarter: 2013Q3

REPORT INFORMATION
  Report Type: Report from Study
  Country: US (occurrence: US)
  Receive Date: 20130701
  Receipt Date: 20130701
  Transmission Date: 20140515
  Serious: Yes (Hospitalization)
  Sender: FDA-Public Use
  Company Number: US-SANOFI-AVENTIS-2013SA056735

PATIENT
  Age: 49 Year
  Sex: Male
  Weight: 86 kg

DRUGS (6)
  1. AUBAGIO [Suspect]
     Indication: MULTIPLE SCLEROSIS
     Dosage: START DATE: ABOUT 3 MONTHS AGO
     Route: 048
     Dates: start: 20130401
  2. BACLOFEN [Concomitant]
     Indication: MULTIPLE SCLEROSIS
  3. DIOVANE [Concomitant]
     Indication: HYPERTENSION
  4. ZOLOFT [Concomitant]
     Indication: DEPRESSION
  5. GABAPENTIN [Concomitant]
     Indication: NEURALGIA
  6. AMBIEN [Concomitant]

REACTIONS (5)
  - Fall [Unknown]
  - Head injury [Unknown]
  - Amnesia [Unknown]
  - Pain in extremity [Unknown]
  - Balance disorder [Unknown]
